FAERS Safety Report 7577210-8 (Version None)
Quarter: 2011Q2

REPORT INFORMATION
  Report Type: 
  Country: None (occurrence: None)
  Receive Date: 20110628
  Receipt Date: 20110614
  Transmission Date: 20111010
  Serious: Yes (Hospitalization)
  Sender: FDA-Public Use
  Company Number: MX-MEDIMMUNE-MEDI-0013299

PATIENT
  Sex: Male

DRUGS (2)
  1. ETHYOL [Suspect]
     Route: 042
     Dates: start: 20110609, end: 20110609
  2. RADIOTHERAPY [Concomitant]

REACTIONS (1)
  - BURNING SENSATION [None]
